FAERS Safety Report 7223709-3 (Version None)
Quarter: 2011Q1

REPORT INFORMATION
  Report Type: 
  Country: None (occurrence: None)
  Receive Date: 20110112
  Receipt Date: 20101025
  Transmission Date: 20110831
  Serious: No
  Sender: FDA-Public Use
  Company Number: US-ALLERGAN-1013665US

PATIENT
  Age: 81 Year
  Sex: Female

DRUGS (3)
  1. RESTASIS [Suspect]
     Indication: DRY EYE
     Dosage: 1 GTT, BID
     Route: 047
     Dates: start: 20101022, end: 20101023
  2. SALINE DROPS [Concomitant]
     Indication: CORNEAL DYSTROPHY
     Dosage: 1 GTT, QAM
     Route: 047
  3. SALINE LUBRICANT [Concomitant]
     Indication: CORNEAL DYSTROPHY
     Dosage: UNK
     Route: 047

REACTIONS (1)
  - DIZZINESS [None]
